FAERS Safety Report 9302584 (Version 1)
Quarter: 2013Q2

REPORT INFORMATION
  Report Type: Spontaneous
  Country: CA (occurrence: None)
  Receive Date: 20130517
  Receipt Date: 20130517
  Transmission Date: 20140414
  Serious: Yes (Hospitalization)
  Sender: FDA-Public Use
  Company Number: CA-011255

PATIENT
  Age: 86 Year
  Sex: Male
  Weight: 70 kg

DRUGS (10)
  1. FIRMAGON /01764801/ [Suspect]
     Indication: PROSTATE CANCER
     Route: 058
     Dates: start: 20110705, end: 20110705
  2. PLAVIX [Concomitant]
  3. LOPRESSOR [Concomitant]
  4. ATORVASTATIN [Concomitant]
  5. ASA [Concomitant]
  6. TYLENOL /00020001/ [Concomitant]
  7. MR TUMEE CALCIUM WITH VITAMIN D [Concomitant]
  8. DILAUDID [Concomitant]
  9. BICALUTAMIDE [Concomitant]
  10. FENTANYL [Concomitant]

REACTIONS (4)
  - Hot flush [None]
  - Dizziness [None]
  - Asthenia [None]
  - Pain [None]
